FAERS Safety Report 9848750 (Version 1)
Quarter: 2013Q4

REPORT INFORMATION
  Report Type: Spontaneous
  Country: US (occurrence: None)
  Receive Date: 20131226
  Receipt Date: 20131226
  Transmission Date: 20140711
  Serious: Yes (Other)
  Sender: FDA-Public Use
  Company Number: PHEH2013US013722

PATIENT
  Sex: Male

DRUGS (4)
  1. TEKTURNA (ALISKIREN) [Suspect]
  2. CARDIZEM CD (DILTIAZEM HYDROCHLORIDE) [Concomitant]
  3. COREG (CARVEDILOL) [Concomitant]
  4. CATAPRES-TTS (CLONIDINE) [Concomitant]

REACTIONS (2)
  - Renal failure [None]
  - Hypertension [None]
